FAERS Safety Report 5168271-4 (Version None)
Quarter: 2006Q4

REPORT INFORMATION
  Report Type: 
  Country: None (occurrence: None)
  Receive Date: 20061208
  Receipt Date: 20060913
  Transmission Date: 20070319
  Serious: Yes (Life-Threatening, Disabling)
  Sender: FDA-Public Use
  Company Number: US-BRISTOL-MYERS SQUIBB COMPANY-13509161

PATIENT
  Age: 51 Year
  Sex: Female

DRUGS (15)
  1. ABILIFY [Suspect]
     Indication: SCHIZOAFFECTIVE DISORDER
     Dosage: INIT DOSE 2.5 -5MG, INCR TO 10 MG 7-25-2006, INCR TO 15 MG 2-1-2006.
     Route: 048
     Dates: start: 20060509, end: 20060817
  2. ABILIFY [Suspect]
     Indication: PSYCHOTIC DISORDER
     Dosage: INIT DOSE 2.5 -5MG, INCR TO 10 MG 7-25-2006, INCR TO 15 MG 2-1-2006.
     Route: 048
     Dates: start: 20060509, end: 20060817
  3. ABILIFY [Suspect]
     Indication: BIPOLAR DISORDER
     Dosage: INIT DOSE 2.5 -5MG, INCR TO 10 MG 7-25-2006, INCR TO 15 MG 2-1-2006.
     Route: 048
     Dates: start: 20060509, end: 20060817
  4. ULTRAM [Concomitant]
  5. AMBIEN [Concomitant]
  6. VICODIN ES [Concomitant]
  7. NEURONTIN [Concomitant]
  8. TOPAMAX [Concomitant]
  9. KLONOPIN [Concomitant]
  10. PAXIL [Concomitant]
  11. INSULIN [Concomitant]
  12. SYNTHROID [Concomitant]
  13. AVAPRO [Concomitant]
  14. ALBUTEROL [Concomitant]
  15. CRESTOR [Concomitant]

REACTIONS (1)
  - CREATININE RENAL CLEARANCE DECREASED [None]
